FAERS Safety Report 5710798-8 (Version None)
Quarter: 2008Q2

REPORT INFORMATION
  Report Type: 
  Country: None (occurrence: None)
  Receive Date: 20080417
  Receipt Date: 20080417
  Transmission Date: 20081010
  Serious: Yes (Disabling)
  Sender: FDA-Public Use
  Company Number: None

PATIENT
  Sex: Female

DRUGS (1)
  1. OMNIPAQUE 350 [Suspect]
     Indication: HEPATIC MASS
     Dosage: 100CC'S ONCE IV BOLUS
     Route: 040
     Dates: start: 20071229, end: 20071229

REACTIONS (2)
  - CONTRAST MEDIA REACTION [None]
  - TYPE IV HYPERSENSITIVITY REACTION [None]
